FAERS Safety Report 7306614-3 (Version None)
Quarter: 2011Q1

REPORT INFORMATION
  Report Type: 
  Country: None (occurrence: None)
  Receive Date: 20110222
  Receipt Date: 20110215
  Transmission Date: 20110831
  Serious: Yes (Hospitalization)
  Sender: FDA-Public Use
  Company Number: US-B.I. PHARMACEUTICALS,INC./RIDGEFIELD-2011-BP-03069BP

PATIENT
  Sex: Female

DRUGS (8)
  1. SYNTHROID [Concomitant]
     Indication: THYROID DISORDER
     Dosage: 112 MCG
  2. FUROSEMIDE [Concomitant]
     Indication: CARDIAC FAILURE CONGESTIVE
     Dosage: 80 MG
  3. OMEPRAZOLE [Concomitant]
     Indication: REFLUX OESOPHAGITIS
     Dosage: 20 MG
  4. AMIODARONE HCL [Concomitant]
     Indication: ATRIAL FIBRILLATION
     Dosage: 400 MG
     Dates: start: 20110211
  5. METOPROLOL [Concomitant]
     Indication: CARDIAC DISORDER
     Dosage: 100 MG
  6. IRON [Concomitant]
     Indication: SUPPLEMENTATION THERAPY
     Dosage: 325 MG
  7. PRADAXA [Suspect]
     Indication: ATRIAL FIBRILLATION
     Dosage: 300 MG
     Route: 048
     Dates: start: 20110211
  8. PRAVASTATIN [Concomitant]
     Indication: BLOOD CHOLESTEROL
     Dosage: 40 MG
     Dates: start: 20110211

REACTIONS (1)
  - ATRIAL FIBRILLATION [None]
